FAERS Safety Report 9857205 (Version 2)
Quarter: 2014Q1

REPORT INFORMATION
  Report Type: Spontaneous
  Country: JP (occurrence: JP)
  Receive Date: 20140130
  Receipt Date: 20140130
  Transmission Date: 20141002
  Serious: Yes (Other)
  Sender: FDA-Public Use
  Company Number: JP-RB-062905-14

PATIENT
  Sex: Female

DRUGS (2)
  1. LEPETAN INJECTION [Suspect]
     Indication: PAIN
     Dosage: DOSING DETAILS UNKNOWN
     Route: 042
  2. PENTAZOCINE HYDROCHLORIDE [Concomitant]
     Indication: PAIN
     Dosage: DOSING DETAILS UNKNOWN
     Route: 065

REACTIONS (3)
  - Hallucination [Unknown]
  - Pyrexia [Unknown]
  - Schizophrenia [Unknown]
